FAERS Safety Report 4601258-6 (Version None)
Quarter: 2005Q1

REPORT INFORMATION
  Report Type: 
  Country: None (occurrence: None)
  Receive Date: 20050204
  Receipt Date: 20040422
  Transmission Date: 20050727
  Serious: Yes (Other)
  Sender: FDA-Public Use
  Company Number: US-SHR-04-023488

PATIENT
  Age: 28 Year
  Sex: Female
  Weight: 50.8 kg

DRUGS (1)
  1. MIRENA [Suspect]
     Indication: CONTRACEPTION
     Dosage: 20 MICROG/DAY, INTRA-UTERINE
     Route: 015
     Dates: start: 20020311, end: 20040402

REACTIONS (3)
  - OVARIAN CYST [None]
  - UTERINE PERFORATION [None]
  - VAGINAL DISCHARGE [None]
